FAERS Safety Report 5041508-8 (Version None)
Quarter: 2006Q2

REPORT INFORMATION
  Report Type: 
  Country: None (occurrence: None)
  Receive Date: 20060627
  Receipt Date: 20060612
  Transmission Date: 20061013
  Serious: Yes (Other)
  Sender: FDA-Public Use
  Company Number: TRP_0780_2006

PATIENT
  Age: 56 Year
  Sex: Male
  Weight: 93.441 kg

DRUGS (4)
  1. RIBASPHERE [Suspect]
     Indication: HEPATITIS C
     Dosage: 800 MG QDAY PO
     Route: 048
     Dates: start: 20060303
  2. PEG-INTRON [Suspect]
     Indication: HEPATITIS C
     Dosage: 150 MCG QWK SC
     Route: 058
     Dates: start: 20060303, end: 20060504
  3. RIBASPHERE [Suspect]
     Indication: HEPATITIS C
     Dosage: 600 MG QDAY PO
     Route: 048
     Dates: end: 20060504
  4. ACETAMINOPHEN AND CODEINE PHOSPHATE [Concomitant]

REACTIONS (9)
  - ANAEMIA [None]
  - ANGER [None]
  - ASTHENIA [None]
  - DEPRESSION [None]
  - FATIGUE [None]
  - HOMICIDAL IDEATION [None]
  - PAIN [None]
  - SUICIDAL IDEATION [None]
  - TREATMENT NONCOMPLIANCE [None]
